FAERS Safety Report 4743953-4 (Version None)
Quarter: 2005Q3

REPORT INFORMATION
  Report Type: 
  Country: None (occurrence: None)
  Receive Date: 20050801
  Receipt Date: 20040825
  Transmission Date: 20060218
  Serious: Yes (Hospitalization)
  Sender: FDA-Public Use
  Company Number: 208660

PATIENT
  Age: 47 Year
  Sex: Male

DRUGS (1)
  1. RITUXAN [Suspect]
     Indication: CENTRAL NERVOUS SYSTEM LYMPHOMA
     Dosage: 1110 MG, INTRAVENOUS
     Route: 042

REACTIONS (1)
  - LUNG INFILTRATION [None]
